FAERS Safety Report 4681888-6 (Version None)
Quarter: 2005Q2

REPORT INFORMATION
  Report Type: 
  Country: None (occurrence: None)
  Receive Date: 20050602
  Receipt Date: 20050524
  Transmission Date: 20051028
  Serious: Yes (Hospitalization, Other)
  Sender: FDA-Public Use
  Company Number: 2005079393

PATIENT
  Sex: Female

DRUGS (4)
  1. LYRICA [Suspect]
     Indication: PAIN
     Dosage: ORAL
     Route: 048
     Dates: end: 20050519
  2. FOSAMAX [Concomitant]
  3. JODID (POTASSIUM IODIDE) [Concomitant]
  4. ALPHA LIPOIC ACID (THIOCTIC ACID) [Concomitant]

REACTIONS (4)
  - AGRANULOCYTOSIS [None]
  - DRUG EFFECT DECREASED [None]
  - FATIGUE [None]
  - LEUKOPENIA [None]
